FAERS Safety Report 7299523-X (Version None)
Quarter: 2010Q4

REPORT INFORMATION
  Report Type: 
  Country: None (occurrence: None)
  Receive Date: 20101223
  Receipt Date: 20100312
  Transmission Date: 20110411
  Serious: Yes (Other)
  Sender: FDA-Public Use
  Company Number: 219311USA

PATIENT
  Age: 21 Year
  Sex: Female

DRUGS (1)
  1. PARAGARD T 380A [Suspect]
     Indication: CONTRACEPTION
     Dosage: I.U.
     Dates: start: 20091221, end: 20091221

REACTIONS (5)
  - ABASIA [None]
  - ABDOMINAL PAIN UPPER [None]
  - DIZZINESS [None]
  - UTERINE CERVICAL PAIN [None]
  - UTERINE PERFORATION [None]
